FAERS Safety Report 4639338-1 (Version None)
Quarter: 2005Q2

REPORT INFORMATION
  Report Type: 
  Country: None (occurrence: None)
  Receive Date: 20050419
  Receipt Date: 20050323
  Transmission Date: 20051028
  Serious: Yes (Hospitalization)
  Sender: FDA-Public Use
  Company Number: JP-ABBOTT-05P-090-0295320-00

PATIENT
  Age: 25 Year
  Sex: Female

DRUGS (2)
  1. SIBUTRAMINE [Suspect]
     Indication: OBESITY
     Route: 048
  2. LEAN CONTROL [Concomitant]
     Indication: OBESITY
     Route: 048

REACTIONS (1)
  - HEPATITIS FULMINANT [None]
